FAERS Safety Report 5688042-X (Version None)
Quarter: 2008Q1

REPORT INFORMATION
  Report Type: 
  Country: None (occurrence: None)
  Receive Date: 20080328
  Receipt Date: 20080319
  Transmission Date: 20080703
  Serious: No
  Sender: FDA-Public Use
  Company Number: GB-BAXTER-2008BH002510

PATIENT
  Age: 60 Year
  Sex: Male

DRUGS (11)
  1. IMMUNE GLOBULIN INTRAVENOUS (HUMAN) [Suspect]
     Indication: DRUG USE FOR UNKNOWN INDICATION
     Route: 042
     Dates: start: 20080227, end: 20080227
  2. AMITRIPTYLINE HCL [Concomitant]
     Route: 048
  3. AMOXICILLIN + CLAVULANATE POTASSIUM [Concomitant]
  4. LANSOPRAZOLE [Concomitant]
     Route: 048
  5. ACETAMINOPHEN [Concomitant]
  6. PREGABALIN [Concomitant]
  7. PROPANTHELINE [Concomitant]
  8. SIMVASTATIN [Concomitant]
  9. THALIDOMIDE [Concomitant]
  10. TRAMADOL HCL [Concomitant]
     Route: 048
  11. CLODRONATE DISODIUM [Concomitant]

REACTIONS (1)
  - CHEST PAIN [None]
